FAERS Safety Report 8950961 (Version 1)
Quarter: 2012Q4

REPORT INFORMATION
  Report Type: 
  Country: US (occurrence: US)
  Receive Date: 20121207
  Receipt Date: 20121207
  Transmission Date: 20130627
  Serious: Yes (Hospitalization)
  Sender: FDA-Public Use
  Company Number: US-BAYER-2012-128012

PATIENT
  Age: 34 Year
  Sex: Female
  Weight: 180.5 kg

DRUGS (9)
  1. YASMIN [Suspect]
     Indication: MENSTRUAL CYCLE MANAGEMENT
     Dosage: UNK
  2. YASMIN [Suspect]
     Indication: MOOD SWINGS
  3. YASMIN [Suspect]
     Indication: CONTRACEPTION
  4. YAZ [Suspect]
     Indication: CONTRACEPTION
     Dosage: UNK
     Dates: start: 20070330, end: 20070406
  5. BENICAR [Concomitant]
  6. PROZAC [Concomitant]
  7. NEURONTIN [Concomitant]
  8. SYNTHROID [Concomitant]
  9. CLINDAMYCIN [Concomitant]
     Indication: CELLULITIS

REACTIONS (5)
  - Pulmonary embolism [None]
  - Thrombophlebitis superficial [None]
  - Myalgia [None]
  - Pain [None]
  - Oedema peripheral [None]
